FAERS Safety Report 25238781 (Version 3)
Quarter: 2025Q2

REPORT INFORMATION
  Report Type: Report from Study
  Country: GB (occurrence: GB)
  Receive Date: 20250425
  Receipt Date: 20250624
  Transmission Date: 20250717
  Serious: Yes (Other)
  Sender: SANDOZ
  Company Number: GB-SANDOZ-SDZ2023GB008060

PATIENT
  Sex: Female

DRUGS (3)
  1. OMNITROPE [Suspect]
     Active Substance: SOMATROPIN
     Indication: Hypopituitarism
     Dosage: 0.90 MG, QD
     Route: 065
  2. OMNITROPE [Suspect]
     Active Substance: SOMATROPIN
     Dosage: 1.40 MG, QD
     Route: 058
  3. OMNITROPE [Suspect]
     Active Substance: SOMATROPIN
     Dosage: 1.60 MG, QD
     Route: 058

REACTIONS (19)
  - Brain injury [Not Recovered/Not Resolved]
  - Hypothalamo-pituitary disorder [Unknown]
  - Partial seizures [Unknown]
  - Blindness [Unknown]
  - Lower respiratory tract infection [Unknown]
  - Learning disorder [Unknown]
  - Fear of injection [Unknown]
  - Irritability [Unknown]
  - Increased appetite [Unknown]
  - Abdominal distension [Unknown]
  - Iron deficiency [Unknown]
  - Visual impairment [Unknown]
  - Muscular dystrophy [Unknown]
  - Influenza [Unknown]
  - Fall [Unknown]
  - Injection site discomfort [Unknown]
  - Malaise [Unknown]
  - Product dose omission issue [Unknown]
  - Product use in unapproved indication [Unknown]
